FAERS Safety Report 5608997-9 (Version None)
Quarter: 2008Q1

REPORT INFORMATION
  Report Type: 
  Country: None (occurrence: None)
  Receive Date: 20080131
  Receipt Date: 20080124
  Transmission Date: 20080703
  Serious: Yes (Other)
  Sender: FDA-Public Use
  Company Number: PHEH2008US01182

PATIENT
  Sex: Male

DRUGS (2)
  1. EXELON [Suspect]
     Dosage: 4.6 MG/UNK
  2. EXELON [Suspect]
     Dosage: 9.5 MG/UNK

REACTIONS (1)
  - DIABETES MELLITUS INADEQUATE CONTROL [None]
